FAERS Safety Report 10418544 (Version 1)
Quarter: 2014Q2

REPORT INFORMATION
  Report Type: Spontaneous
  Country: US (occurrence: None)
  Receive Date: 20140616
  Receipt Date: 20140616
  Transmission Date: 20141212
  Serious: Yes (Hospitalization)
  Sender: FDA-Public Use
  Company Number: BU2014-001

PATIENT
  Age: 5 Month
  Sex: Female

DRUGS (5)
  1. BUPHENYL [Suspect]
     Indication: AMINO ACID METABOLISM DISORDER
     Dosage: 1/4 TEASPOON, QID, PO
     Route: 048
     Dates: start: 20140104, end: 20140109
  2. L-CITRULLINE [Concomitant]
  3. ZANTAC [Concomitant]
  4. SODIUM BENZOATE [Concomitant]
  5. POLYVISOL WITH IRON [Concomitant]

REACTIONS (2)
  - Vomiting [None]
  - Hyperammonaemic crisis [None]
